FAERS Safety Report 19579768 (Version 1)
Quarter: 2021Q3

REPORT INFORMATION
  Report Type: Spontaneous
  Country: US (occurrence: US)
  Receive Date: 20210719
  Receipt Date: 20210719
  Transmission Date: 20211014
  Serious: No
  Sender: FDA-Public Use
  Company Number: US-NOVOPROD-781240

PATIENT
  Age: 67 Year
  Sex: Female

DRUGS (1)
  1. OZEMPIC [Suspect]
     Active Substance: SEMAGLUTIDE
     Indication: TYPE 2 DIABETES MELLITUS
     Dosage: 0.25 MG, QW
     Route: 058
     Dates: start: 20201215

REACTIONS (5)
  - Device malfunction [Unknown]
  - Fear of injection [Unknown]
  - Dizziness [Recovered/Resolved]
  - Product label confusion [Unknown]
  - Overdose [Unknown]

NARRATIVE: CASE EVENT DATE: 20210112
